FAERS Safety Report 4317448-6 (Version None)
Quarter: 2004Q1

REPORT INFORMATION
  Report Type: 
  Country: None (occurrence: None)
  Receive Date: 20040312
  Receipt Date: 20040227
  Transmission Date: 20041129
  Serious: No
  Sender: FDA-Public Use
  Company Number: 27723

PATIENT

DRUGS (6)
  1. BETAXOLOL HCL 0.25% SUSPENSION [Suspect]
     Indication: GLAUCOMA
     Dosage: OPHT
     Route: 047
     Dates: start: 20040124, end: 20040131
  2. BETAXOLOL HCL 0.5% SUSPENSION (BETOPTIC S) [Suspect]
     Indication: GLAUCOMA
     Dosage: OPHT
     Route: 047
     Dates: start: 20040124, end: 20040131
  3. DISOPYRAMIDE [Concomitant]
  4. ISOSORBIDE DINITTAMIDE [Concomitant]
  5. DIPYRIDAMOLE [Concomitant]
  6. TEPRENONE [Concomitant]

REACTIONS (2)
  - EYE IRRITATION [None]
  - PULSE ABSENT [None]
